FAERS Safety Report 17599671 (Version 1)
Quarter: 2020Q1

REPORT INFORMATION
  Report Type: Spontaneous
  Country: US (occurrence: US)
  Receive Date: 20200330
  Receipt Date: 20200330
  Transmission Date: 20200409
  Serious: Yes (Other)
  Sender: FDA-Public Use
  Company Number: None

PATIENT
  Age: 83 Year
  Sex: Male
  Weight: 108.45 kg

DRUGS (2)
  1. PREDNISONE 5MG [Concomitant]
     Active Substance: PREDNISONE
  2. ABIRATERONE. [Suspect]
     Active Substance: ABIRATERONE ACETATE
     Indication: PROSTATE CANCER

REACTIONS (2)
  - Blood cholesterol increased [None]
  - Hypertension [None]

NARRATIVE: CASE EVENT DATE: 20200330
